FAERS Safety Report 6031875-0 (Version None)
Quarter: 2009Q1

REPORT INFORMATION
  Report Type: 
  Country: None (occurrence: None)
  Receive Date: 20090108
  Receipt Date: 20090105
  Transmission Date: 20090719
  Serious: Yes (Disabling)
  Sender: FDA-Public Use
  Company Number: ZA-ALLERGAN-0813363US

PATIENT
  Sex: Female

DRUGS (1)
  1. BOTOX [Suspect]
     Indication: ROTATOR CUFF SYNDROME
     Dosage: 400 UNITS, UNK
     Route: 030

REACTIONS (1)
  - PARALYSIS [None]
